FAERS Safety Report 5087671-4 (Version None)
Quarter: 2006Q3

REPORT INFORMATION
  Report Type: 
  Country: None (occurrence: None)
  Receive Date: 20060727
  Receipt Date: 20060403
  Transmission Date: 20061208
  Serious: Yes (Other)
  Sender: FDA-Public Use
  Company Number: 2006047402

PATIENT
  Sex: Female

DRUGS (2)
  1. LYRICA [Suspect]
     Indication: NEURALGIA
     Dosage: 75 MG (75 MG, 1 IN 1 D),
     Dates: start: 20060402
  2. LYRICA [Suspect]
     Indication: SCIATICA
     Dosage: 75 MG (75 MG, 1 IN 1 D),
     Dates: start: 20060402

REACTIONS (1)
  - DRUG INEFFECTIVE [None]
